FAERS Safety Report 11239672 (Version 1)
Quarter: 2015Q3

REPORT INFORMATION
  Report Type: Spontaneous
  Country: GB (occurrence: GB)
  Receive Date: 20150706
  Receipt Date: 20150706
  Transmission Date: 20151125
  Serious: Yes (Other)
  Sender: FDA-Public Use
  Company Number: GB-TEVA-575342ACC

PATIENT
  Age: 47 Year
  Sex: Male
  Weight: 98.42 kg

DRUGS (6)
  1. BISOPROLOL FUMARATE. [Concomitant]
     Active Substance: BISOPROLOL FUMARATE
  2. ALISKIREN [Concomitant]
     Active Substance: ALISKIREN
  3. ASPIRIN. [Concomitant]
     Active Substance: ASPIRIN
  4. AMLODIPINE [Suspect]
     Active Substance: AMLODIPINE BESYLATE
     Indication: HYPERTENSION
     Dosage: 5 MILLIGRAM DAILY;
     Route: 048
     Dates: start: 20150526, end: 20150617
  5. SIMVASTATIN. [Concomitant]
     Active Substance: SIMVASTATIN
  6. MOXONIDINE [Concomitant]
     Active Substance: MOXONIDINE

REACTIONS (4)
  - Eyelid oedema [Not Recovered/Not Resolved]
  - Confusional state [Not Recovered/Not Resolved]
  - Dizziness postural [Not Recovered/Not Resolved]
  - Cough [Not Recovered/Not Resolved]

NARRATIVE: CASE EVENT DATE: 20150529
